FAERS Safety Report 19182421 (Version 1)
Quarter: 2021Q2

REPORT INFORMATION
  Report Type: Spontaneous
  Country: US (occurrence: US)
  Receive Date: 20210427
  Receipt Date: 20210427
  Transmission Date: 20210717
  Serious: No
  Sender: FDA-Public Use
  Company Number: US-LUPIN PHARMACEUTICALS INC.-2021-05227

PATIENT
  Age: 18 Year
  Sex: Female

DRUGS (12)
  1. TADALAFIL. [Suspect]
     Active Substance: TADALAFIL
     Indication: MULTIPLE CONGENITAL ABNORMALITIES
  2. SILDENAFIL. [Suspect]
     Active Substance: SILDENAFIL
     Indication: MULTIPLE CONGENITAL ABNORMALITIES
  3. RAPAMYCIN [Concomitant]
     Active Substance: SIROLIMUS
     Indication: MULTIPLE CONGENITAL ABNORMALITIES
  4. BLEOMYCIN [Concomitant]
     Active Substance: BLEOMYCIN SULFATE
     Indication: LYMPHATIC DISORDER
     Dosage: IMAGE GUIDED SCLEROTHERAPY
     Route: 065
  5. TADALAFIL. [Suspect]
     Active Substance: TADALAFIL
     Indication: LYMPHATIC DISORDER
     Dosage: 5 MILLIGRAM, QD (AT BEDTIME)
     Route: 048
  6. DOXYCYCLINE. [Concomitant]
     Active Substance: DOXYCYCLINE
     Indication: MULTIPLE CONGENITAL ABNORMALITIES
  7. RAPAMYCIN [Concomitant]
     Active Substance: SIROLIMUS
     Indication: LYMPHATIC DISORDER
     Dosage: UNK
     Route: 061
  8. SODIUM TETRADECYL SULFATE [Concomitant]
     Active Substance: SODIUM TETRADECYL SULFATE
     Indication: MULTIPLE CONGENITAL ABNORMALITIES
  9. DOXYCYCLINE. [Concomitant]
     Active Substance: DOXYCYCLINE
     Indication: LYMPHATIC DISORDER
     Dosage: IMAGE GUIDED SCLEROTHERAPY
     Route: 065
  10. SODIUM TETRADECYL SULFATE [Concomitant]
     Active Substance: SODIUM TETRADECYL SULFATE
     Indication: LYMPHATIC DISORDER
     Dosage: IMAGE GUIDED SCLEROTHERAPY
     Route: 065
  11. SILDENAFIL. [Suspect]
     Active Substance: SILDENAFIL
     Indication: LYMPHATIC DISORDER
     Dosage: 20 MILLIGRAM, QD (AT BEDTIME)
     Route: 048
  12. BLEOMYCIN [Concomitant]
     Active Substance: BLEOMYCIN SULFATE
     Indication: MULTIPLE CONGENITAL ABNORMALITIES

REACTIONS (1)
  - Off label use [Unknown]
